FAERS Safety Report 8130024-2 (Version None)
Quarter: 2012Q1

REPORT INFORMATION
  Report Type: 
  Country: None (occurrence: None)
  Receive Date: 20120210
  Receipt Date: 20120131
  Transmission Date: 20120608
  Serious: Yes (Death, Hospitalization)
  Sender: FDA-Public Use
  Company Number: US-ABBOTT-12P-163-0899590-00

PATIENT
  Sex: Female

DRUGS (1)
  1. DEPAKOTE [Suspect]
     Indication: DEMENTIA ALZHEIMER'S TYPE
     Dates: start: 20100701, end: 20110101

REACTIONS (7)
  - INTESTINAL OBSTRUCTION [None]
  - DEMENTIA ALZHEIMER'S TYPE [None]
  - ASTHENIA [None]
  - BEDRIDDEN [None]
  - WEIGHT DECREASED [None]
  - HYPOPHAGIA [None]
  - DYSPHAGIA [None]
